FAERS Safety Report 23436098 (Version 1)
Quarter: 2024Q1

REPORT INFORMATION
  Report Type: Report from Study
  Country: UY (occurrence: UY)
  Receive Date: 20240124
  Receipt Date: 20240124
  Transmission Date: 20240409
  Serious: Yes (Other)
  Sender: FDA-Public Use
  Company Number: UY-ABBVIE-5502267

PATIENT
  Sex: Female

DRUGS (1)
  1. RINVOQ [Suspect]
     Active Substance: UPADACITINIB
     Indication: Rheumatoid arthritis
     Dosage: FORM STRENGTH: 15 MILLIGRAM
     Route: 048
     Dates: start: 20230315

REACTIONS (5)
  - Bone infarction [Unknown]
  - Gait disturbance [Unknown]
  - Musculoskeletal disorder [Not Recovered/Not Resolved]
  - Pain in extremity [Unknown]
  - Tendonitis [Unknown]

NARRATIVE: CASE EVENT DATE: 20230101
